FAERS Safety Report 25397185 (Version 1)
Quarter: 2025Q2

REPORT INFORMATION
  Report Type: Spontaneous
  Country: US (occurrence: None)
  Receive Date: 20250604
  Receipt Date: 20250604
  Transmission Date: 20250716
  Serious: Yes (Hospitalization, Disabling)
  Sender: FDA-CTU
  Company Number: None

PATIENT
  Age: 44 Year
  Sex: Male
  Weight: 76.5 kg

DRUGS (1)
  1. MINOXIDIL 5% [Suspect]
     Active Substance: MINOXIDIL
     Dosage: OTHER QUANTITY : 0.5 CAPFUL;?FREQUENCY : DAILY;?
     Route: 061

REACTIONS (14)
  - Muscle twitching [None]
  - Eye movement disorder [None]
  - Tremor [None]
  - Hypoaesthesia [None]
  - Paraesthesia [None]
  - Back pain [None]
  - Back pain [None]
  - Abdominal discomfort [None]
  - Insomnia [None]
  - Muscular weakness [None]
  - Aphonia [None]
  - Cognitive disorder [None]
  - Brain fog [None]
  - Tachycardia [None]

NARRATIVE: CASE EVENT DATE: 20241015
